FAERS Safety Report 6885205-2 (Version None)
Quarter: 2010Q3

REPORT INFORMATION
  Report Type: 
  Country: None (occurrence: None)
  Receive Date: 20100727
  Receipt Date: 20100611
  Transmission Date: 20110219
  Serious: Yes (Death, Hospitalization, Other)
  Sender: FDA-Public Use
  Company Number: US-BAXTER-2010BH002774

PATIENT
  Age: 70 Year
  Sex: Male

DRUGS (27)
  1. HEPARIN SODIUM [Suspect]
     Indication: AORTOGRAM
     Route: 065
     Dates: start: 20071018, end: 20071018
  2. HEPARIN SODIUM [Suspect]
     Indication: PERIPHERAL ARTERY ANGIOPLASTY
     Route: 065
     Dates: start: 20071018, end: 20071018
  3. HEPARIN SODIUM [Suspect]
     Indication: ARTERIAL STENT INSERTION
     Route: 065
     Dates: start: 20071018, end: 20071018
  4. HEPARIN SODIUM [Suspect]
     Indication: CONTINUOUS HAEMODIAFILTRATION
     Route: 065
     Dates: start: 20071018, end: 20071018
  5. HEPARIN SODIUM [Suspect]
     Route: 040
     Dates: start: 20071024, end: 20071029
  6. HEPARIN SODIUM [Suspect]
     Route: 040
     Dates: start: 20071024, end: 20071029
  7. HEPARIN SODIUM [Suspect]
     Route: 040
     Dates: start: 20071024, end: 20071029
  8. HEPARIN SODIUM [Suspect]
     Route: 040
     Dates: start: 20071024, end: 20071029
  9. HEPARIN SODIUM [Suspect]
     Route: 042
     Dates: start: 20071101, end: 20071101
  10. HEPARIN SODIUM [Suspect]
     Route: 042
     Dates: start: 20071101, end: 20071101
  11. HEPARIN SODIUM [Suspect]
     Route: 042
     Dates: start: 20071101, end: 20071101
  12. HEPARIN SODIUM [Suspect]
     Route: 042
     Dates: start: 20071101, end: 20071101
  13. HEPARIN SODIUM [Suspect]
     Route: 040
     Dates: start: 20080204, end: 20080204
  14. HEPARIN SODIUM [Suspect]
     Route: 040
     Dates: start: 20080204, end: 20080204
  15. HEPARIN SODIUM [Suspect]
     Route: 040
     Dates: start: 20080204, end: 20080204
  16. HEPARIN SODIUM [Suspect]
     Route: 040
     Dates: start: 20080204, end: 20080204
  17. HEPARIN SODIUM 5,000 UNITS IN DEXTROSE 5% [Suspect]
     Indication: CONTINUOUS HAEMODIAFILTRATION
     Route: 042
     Dates: start: 20071024, end: 20071104
  18. HEPARIN SODIUM 5,000 UNITS IN DEXTROSE 5% [Suspect]
     Route: 042
     Dates: start: 20071105, end: 20071101
  19. HEPARIN SODIUM 5,000 UNITS IN DEXTROSE 5% [Suspect]
     Route: 042
     Dates: start: 20080204, end: 20080205
  20. ARGATROBAN [Suspect]
     Indication: CONTINUOUS HAEMODIAFILTRATION
     Route: 042
     Dates: start: 20071102, end: 20071104
  21. NIFEDIPINE [Concomitant]
     Indication: PRODUCT USED FOR UNKNOWN INDICATION
     Route: 065
  22. FOSINOPRIL SODIUM [Concomitant]
     Indication: PRODUCT USED FOR UNKNOWN INDICATION
     Route: 065
  23. ASPIRIN [Concomitant]
     Indication: PRODUCT USED FOR UNKNOWN INDICATION
     Route: 065
  24. COREG [Concomitant]
     Indication: PRODUCT USED FOR UNKNOWN INDICATION
     Route: 065
  25. DIGOXIN [Concomitant]
     Indication: PRODUCT USED FOR UNKNOWN INDICATION
     Route: 065
  26. NAPROXEN [Concomitant]
     Indication: PRODUCT USED FOR UNKNOWN INDICATION
     Route: 065
  27. PLAVIX [Concomitant]
     Indication: PRODUCT USED FOR UNKNOWN INDICATION
     Route: 065

REACTIONS (25)
  - ANAEMIA [None]
  - ATRIAL FIBRILLATION [None]
  - CARDIAC ARREST [None]
  - CARDIAC FAILURE CONGESTIVE [None]
  - CARDIOGENIC SHOCK [None]
  - GASTROINTESTINAL DISORDER [None]
  - HAEMORRHAGE [None]
  - HYPOTENSION [None]
  - METABOLIC ACIDOSIS [None]
  - MULTI-ORGAN FAILURE [None]
  - MYOCARDIAL INFARCTION [None]
  - PNEUMONIA [None]
  - PULMONARY OEDEMA [None]
  - PYREXIA [None]
  - RENAL FAILURE [None]
  - RESPIRATORY ARREST [None]
  - RESPIRATORY FAILURE [None]
  - SEPSIS [None]
  - SEPTIC SHOCK [None]
  - SPUTUM CULTURE POSITIVE [None]
  - STAPHYLOCOCCAL INFECTION [None]
  - SUPRAVENTRICULAR TACHYCARDIA [None]
  - THROMBOCYTOPENIA [None]
  - UNRESPONSIVE TO STIMULI [None]
  - VASCULAR PSEUDOANEURYSM [None]
